FAERS Safety Report 8516468-5 (Version None)
Quarter: 2012Q3

REPORT INFORMATION
  Report Type: 
  Country: None (occurrence: None)
  Receive Date: 20120718
  Receipt Date: 20120710
  Transmission Date: 20120928
  Serious: No
  Sender: FDA-Public Use
  Company Number: US-PFIZER INC-2012166297

PATIENT
  Sex: Female

DRUGS (4)
  1. CODEINE SULFATE [Suspect]
     Dosage: UNK
  2. VIBRAMYCIN [Suspect]
     Dosage: UNK
  3. VALIUM [Suspect]
     Dosage: UNK
  4. REGLAN [Suspect]
     Dosage: UNK

REACTIONS (1)
  - DRUG HYPERSENSITIVITY [None]
